FAERS Safety Report 4806694-0 (Version None)
Quarter: 2005Q4

REPORT INFORMATION
  Report Type: 
  Country: None (occurrence: None)
  Receive Date: 20051019
  Receipt Date: 20050930
  Transmission Date: 20060501
  Serious: Yes (Hospitalization)
  Sender: FDA-Public Use
  Company Number: DE_050917058

PATIENT
  Age: 67 Year
  Sex: Female

DRUGS (7)
  1. FORTEO [Suspect]
     Indication: OSTEOPOROSIS
     Dates: start: 20050101, end: 20050901
  2. VERAPAMIL [Concomitant]
  3. ASS 100 ^CT-ARZNEIMITTEL^ (ACETYLSALICYLIC ACID) [Concomitant]
  4. TOREM (TORASEMIDE SODIUM) [Concomitant]
  5. PHENYTOIN [Concomitant]
  6. SYMBICORT [Concomitant]
  7. .... [Concomitant]

REACTIONS (4)
  - ANAEMIA [None]
  - GASTRIC HAEMORRHAGE [None]
  - GASTRITIS EROSIVE [None]
  - HELICOBACTER INFECTION [None]
